FAERS Safety Report 8044660-5 (Version None)
Quarter: 2011Q4

REPORT INFORMATION
  Report Type: 
  Country: None (occurrence: None)
  Receive Date: 20111202
  Receipt Date: 20110413
  Transmission Date: 20120403
  Serious: Yes (Other)
  Sender: FDA-Public Use
  Company Number: 2011SP016577

PATIENT
  Age: 47 Year
  Sex: Female
  Weight: 59.8748 kg

DRUGS (4)
  1. HERBAL TEA [Concomitant]
  2. NUVARING [Suspect]
     Indication: CONTRACEPTION
     Dosage: 1 DF;QM;VAG
     Route: 067
     Dates: start: 20090101, end: 20090515
  3. NASONEX 04/05/2009 [Concomitant]
  4. PATANASE 04/05/2009 [Concomitant]

REACTIONS (6)
  - MENTAL DISORDER [None]
  - THROMBOPHLEBITIS [None]
  - CONTUSION [None]
  - EMOTIONAL DISORDER [None]
  - HYPERTENSION [None]
  - DEEP VEIN THROMBOSIS [None]
